FAERS Safety Report 17076933 (Version 1)
Quarter: 2019Q4

REPORT INFORMATION
  Report Type: Spontaneous
  Country: US (occurrence: US)
  Receive Date: 20191126
  Receipt Date: 20191126
  Transmission Date: 20200122
  Serious: Yes (Other)
  Sender: FDA-Public Use
  Company Number: US-FOUNDATIONCONSUMERHC-2019-US-022056

PATIENT
  Age: 36 Year
  Sex: Female
  Weight: 58.97 kg

DRUGS (6)
  1. ADDERALLL [Concomitant]
     Dosage: AS NEEDED
  2. TAKE ACTION [Suspect]
     Active Substance: LEVONORGESTREL
     Indication: POST COITAL CONTRACEPTION
     Dosage: 1.5 MG X 1 DOSE AS WELL AND 1 DOSE IN APPROXIMATELY 2016
     Route: 048
     Dates: start: 20191020, end: 20191020
  3. SELENIUM [Concomitant]
     Active Substance: SELENIUM
  4. HCL BETAINE [Concomitant]
  5. MAGNESIUM [Concomitant]
     Active Substance: MAGNESIUM
  6. IODINE. [Concomitant]
     Active Substance: IODINE

REACTIONS (6)
  - Nausea [Not Recovered/Not Resolved]
  - Feeling abnormal [Unknown]
  - Suicidal ideation [Unknown]
  - Menstruation delayed [Not Recovered/Not Resolved]
  - Depression [Unknown]
  - Vaginal haemorrhage [Recovered/Resolved]

NARRATIVE: CASE EVENT DATE: 2016
